FAERS Safety Report 24416267 (Version 2)
Quarter: 2024Q4

REPORT INFORMATION
  Report Type: Spontaneous
  Country: US (occurrence: US)
  Receive Date: 20241009
  Receipt Date: 20241112
  Transmission Date: 20250115
  Serious: Yes (Other)
  Sender: TEVA
  Company Number: US-TEVA-VS-3250847

PATIENT
  Age: 14 Year
  Sex: Male

DRUGS (9)
  1. FLUTICASONE [Suspect]
     Active Substance: FLUTICASONE
     Indication: Eosinophilic oesophagitis
     Dosage: FOUR PUFFS TWICE DAILY
     Route: 055
  2. FLUTICASONE [Suspect]
     Active Substance: FLUTICASONE
     Dosage: TWO PUFFS TWICE DAILY
     Route: 055
  3. PREDNISONE [Suspect]
     Active Substance: PREDNISONE
     Indication: Eosinophilic oesophagitis
     Dosage: RECEIVED WITH A 10?WEEK TAPER
     Route: 048
  4. DUPILUMAB [Suspect]
     Active Substance: DUPILUMAB
     Indication: Eosinophilic oesophagitis
     Route: 058
  5. PREDNISOLONE [Suspect]
     Active Substance: PREDNISOLONE
     Indication: Eosinophilic oesophagitis
     Dosage: RECEIVED FOR ONE WEEK
     Route: 065
  6. PREDNISOLONE [Suspect]
     Active Substance: PREDNISOLONE
     Indication: Eosinophilic oesophagitis
     Dosage: RECEIVED FOR 4?WEEK FOLLOWED BY TAPER OVER SIX WEEK
     Route: 065
  7. PREDNISOLONE [Suspect]
     Active Substance: PREDNISOLONE
     Indication: Eosinophilic oesophagitis
     Route: 065
  8. BUDESONIDE [Suspect]
     Active Substance: BUDESONIDE
     Indication: Eosinophilic oesophagitis
     Dosage: SLURRY
     Route: 065
  9. OMEPRAZOLE [Suspect]
     Active Substance: OMEPRAZOLE
     Indication: Eosinophilic oesophagitis
     Route: 065

REACTIONS (2)
  - Decreased appetite [Unknown]
  - Drug ineffective [Unknown]
